FAERS Safety Report 9049177 (Version 1)
Quarter: 2013Q1

REPORT INFORMATION
  Report Type: Spontaneous
  Country: US (occurrence: None)
  Receive Date: 20130130
  Receipt Date: 20130130
  Transmission Date: 20140127
  Serious: Yes (Life-Threatening, Disabling, Other)
  Sender: FDA-Public Use
  Company Number: None

PATIENT
  Age: 54 Year
  Sex: Male
  Weight: 102.06 kg

DRUGS (1)
  1. HYDROCODONE BITARTRATE AND ACETOMINOPHEN [Suspect]
     Indication: PAIN
     Dosage: 1 EVERY 4 HRS
     Route: 048
     Dates: start: 20120228, end: 20120228

REACTIONS (4)
  - Product quality issue [None]
  - Haematochezia [None]
  - Unevaluable event [None]
  - Product size issue [None]
